FAERS Safety Report 9228638 (Version 2)
Quarter: 2013Q2

REPORT INFORMATION
  Report Type: Report from Study
  Country: MX (occurrence: MX)
  Receive Date: 20130412
  Receipt Date: 20130520
  Transmission Date: 20140414
  Serious: Yes (Death, Other)
  Sender: FDA-Public Use
  Company Number: MX-ROCHE-1211400

PATIENT
  Sex: 0

DRUGS (2)
  1. ALTEPLASE [Suspect]
     Indication: ACUTE MYOCARDIAL INFARCTION
     Route: 042
  2. HEPARIN [Suspect]
     Indication: ANTICOAGULANT THERAPY
     Dosage: WEIGHT ADJUSTED
     Route: 065

REACTIONS (9)
  - Cardiogenic shock [Fatal]
  - Myocardial infarction [Fatal]
  - Procedural complication [Fatal]
  - Death [Fatal]
  - Myocardial ischaemia [Unknown]
  - Puncture site haemorrhage [Unknown]
  - Gastrointestinal haemorrhage [Unknown]
  - Hypotension [Unknown]
  - Hypovolaemia [Unknown]
